FAERS Safety Report 11620809 (Version 1)
Quarter: 2015Q4

REPORT INFORMATION
  Report Type: Spontaneous
  Country: BR (occurrence: BR)
  Receive Date: 20151012
  Receipt Date: 20151012
  Transmission Date: 20160304
  Serious: Yes (Hospitalization, Other)
  Sender: FDA-Public Use
  Company Number: BR-JNJFOC-20151003179

PATIENT
  Age: 38 Year
  Sex: Female

DRUGS (2)
  1. INFLIXIMAB, RECOMBINANT [Suspect]
     Active Substance: INFLIXIMAB
     Indication: COLITIS ULCERATIVE
     Route: 042
     Dates: start: 201208
  2. INFLIXIMAB, RECOMBINANT [Suspect]
     Active Substance: INFLIXIMAB
     Indication: COLITIS ULCERATIVE
     Route: 042

REACTIONS (9)
  - Cytomegalovirus infection [Recovered/Resolved]
  - Syncope [Unknown]
  - Hypochromic anaemia [Unknown]
  - Colitis ulcerative [Unknown]
  - Hypotension [Unknown]
  - Resuscitation [Unknown]
  - Cellulitis [Unknown]
  - Dehydration [Unknown]
  - Drug effect decreased [Unknown]

NARRATIVE: CASE EVENT DATE: 201305
